FAERS Safety Report 6590823-5 (Version None)
Quarter: 2010Q1

REPORT INFORMATION
  Report Type: 
  Country: None (occurrence: None)
  Receive Date: 20100214
  Receipt Date: 20091120
  Transmission Date: 20100710
  Serious: Yes (Hospitalization, Other)
  Sender: FDA-Public Use
  Company Number: 2009US-24781

PATIENT
  Age: 49 Year
  Sex: Female

DRUGS (3)
  1. VERAPAMIL [Suspect]
     Indication: DRUG USE FOR UNKNOWN INDICATION
     Dosage: 5.8 G
  2. CAPTOPRIL [Concomitant]
  3. GLYBURIDE [Concomitant]

REACTIONS (1)
  - DRUG TOXICITY [None]
